FAERS Safety Report 8333886-9 (Version None)
Quarter: 2012Q2

REPORT INFORMATION
  Report Type: 
  Country: None (occurrence: None)
  Receive Date: 20120503
  Receipt Date: 20120427
  Transmission Date: 20120825
  Serious: Yes (Life-Threatening)
  Sender: FDA-Public Use
  Company Number: IT-TEVA-335690ISR

PATIENT
  Sex: Female

DRUGS (5)
  1. CONDIUREN [Concomitant]
     Dosage: ENALAPRIL MALEATE 20 MG /HYDROCHLOROTHIAZIDE 12.5 MG
  2. METFORMIN HCL [Suspect]
     Indication: TYPE 2 DIABETES MELLITUS
     Route: 048
     Dates: start: 20100101, end: 20120418
  3. DRAMION [Concomitant]
     Indication: TYPE 2 DIABETES MELLITUS
  4. GABAPENTIN [Concomitant]
     Indication: DIABETIC NEUROPATHY
  5. LOSARTAN POTASSIUM [Concomitant]

REACTIONS (3)
  - LACTIC ACIDOSIS [None]
  - RENAL FAILURE ACUTE [None]
  - HYPOGLYCAEMIA [None]
